FAERS Safety Report 9774567 (Version 1)
Quarter: 2013Q4

REPORT INFORMATION
  Report Type: Spontaneous
  Country: US (occurrence: US)
  Receive Date: 20131220
  Receipt Date: 20131220
  Transmission Date: 20140711
  Serious: Yes (Hospitalization)
  Sender: FDA-Public Use
  Company Number: US-TEVA-451943USA

PATIENT
  Sex: Male

DRUGS (1)
  1. TREANDA [Suspect]
     Indication: NON-HODGKIN^S LYMPHOMA
     Dates: start: 20131210, end: 20131210

REACTIONS (1)
  - Skin reaction [Not Recovered/Not Resolved]
